FAERS Safety Report 25193175 (Version 1)
Quarter: 2025Q2

REPORT INFORMATION
  Report Type: Spontaneous
  Country: US (occurrence: None)
  Receive Date: 20250414
  Receipt Date: 20250414
  Transmission Date: 20250716
  Serious: Yes (Hospitalization)
  Sender: FDA-CTU
  Company Number: None

PATIENT
  Age: 32 Year
  Sex: Female
  Weight: 58.5 kg

DRUGS (3)
  1. XEOMIN [Suspect]
     Active Substance: INCOBOTULINUMTOXINA
     Route: 030
     Dates: start: 20250410
  2. MIRALAX [Concomitant]
     Active Substance: POLYETHYLENE GLYCOL 3350
  3. VITAMINS [Concomitant]
     Active Substance: VITAMINS

REACTIONS (9)
  - Visual impairment [None]
  - Vision blurred [None]
  - Memory impairment [None]
  - Abdominal pain upper [None]
  - Bladder disorder [None]
  - Hallucinations, mixed [None]
  - Insomnia [None]
  - Hypoaesthesia [None]
  - Pharyngeal disorder [None]

NARRATIVE: CASE EVENT DATE: 20250410
